FAERS Safety Report 6130414-3 (Version None)
Quarter: 2009Q1

REPORT INFORMATION
  Report Type: 
  Country: None (occurrence: None)
  Receive Date: 20090324
  Receipt Date: 20090317
  Transmission Date: 20090719
  Serious: Yes (Congenital Anomaly)
  Sender: FDA-Public Use
  Company Number: FR-GILEAD-2009-0020926

PATIENT
  Sex: Female

DRUGS (3)
  1. TRUVADA [Suspect]
     Indication: HIV INFECTION
     Route: 064
     Dates: start: 20051201
  2. SUSTIVA [Suspect]
     Indication: HIV INFECTION
     Route: 064
     Dates: start: 20051201, end: 20071211
  3. FUMAFER [Concomitant]
     Indication: IRON DEFICIENCY
     Route: 064
     Dates: start: 20071101

REACTIONS (1)
  - ULTRASOUND ANTENATAL SCREEN ABNORMAL [None]
